FAERS Safety Report 9154941 (Version 1)
Quarter: 2013Q1

REPORT INFORMATION
  Report Type: Spontaneous
  Country: US (occurrence: US)
  Receive Date: 20130311
  Receipt Date: 20130311
  Transmission Date: 20140127
  Serious: No
  Sender: FDA-Public Use
  Company Number: US-ABBOTT-12P-163-0973293-00

PATIENT
  Age: 25 None
  Sex: Female
  Weight: 73.09 kg

DRUGS (3)
  1. LUPRON DEPOT 11.25 MG [Suspect]
     Indication: PELVIC PAIN
     Route: 030
     Dates: start: 20120629
  2. VICODIN [Concomitant]
     Indication: PELVIC PAIN
     Dates: start: 20120703
  3. APRAZOLAM [Concomitant]
     Indication: ANXIETY

REACTIONS (12)
  - Off label use [Unknown]
  - Vision blurred [Not Recovered/Not Resolved]
  - Pain in extremity [Not Recovered/Not Resolved]
  - Pain in extremity [Not Recovered/Not Resolved]
  - Pain in extremity [Not Recovered/Not Resolved]
  - Arthralgia [Not Recovered/Not Resolved]
  - Burning sensation [Not Recovered/Not Resolved]
  - Fibromyalgia [Not Recovered/Not Resolved]
  - Pain [Not Recovered/Not Resolved]
  - Migraine [Not Recovered/Not Resolved]
  - Arthralgia [Not Recovered/Not Resolved]
  - Migraine [Not Recovered/Not Resolved]
